FAERS Safety Report 9843005 (Version 1)
Quarter: 2014Q1

REPORT INFORMATION
  Report Type: Spontaneous
  Country: US (occurrence: US)
  Receive Date: 20140124
  Receipt Date: 20140124
  Transmission Date: 20141002
  Serious: No
  Sender: FDA-Public Use
  Company Number: US-B.I. PHARMACEUTICALS,INC./RIDGEFIELD-2014-BI-01994BP

PATIENT
  Age: 77 Year
  Sex: Male
  Weight: 73 kg

DRUGS (8)
  1. SPIRIVA [Suspect]
     Indication: EMPHYSEMA
     Dosage: 18 MCG
     Route: 055
     Dates: start: 200402
  2. SYNTHROID [Concomitant]
     Route: 048
  3. DIOVAN [Concomitant]
     Dosage: 80 MG
     Route: 048
  4. ANDROGEL [Concomitant]
     Dosage: 4 MG
  5. BROVANA NEBS [Concomitant]
     Indication: EMPHYSEMA
     Route: 055
  6. PROAIR [Concomitant]
     Indication: EMPHYSEMA
     Dosage: PRN
     Route: 055
  7. ALBUTEROL NEBS [Concomitant]
     Indication: EMPHYSEMA
     Dosage: PRN
     Route: 055
  8. BUDESONIDE NEBS [Concomitant]
     Indication: EMPHYSEMA
     Route: 055

REACTIONS (3)
  - Osteopenia [Not Recovered/Not Resolved]
  - Cataract [Not Recovered/Not Resolved]
  - Wrong device used [Not Recovered/Not Resolved]
